FAERS Safety Report 4650091-8 (Version None)
Quarter: 2005Q2

REPORT INFORMATION
  Report Type: 
  Country: None (occurrence: None)
  Receive Date: 20050428
  Receipt Date: 20050418
  Transmission Date: 20051028
  Serious: Yes (Other)
  Sender: FDA-Public Use
  Company Number: HQWYE427928MAR05

PATIENT
  Sex: Female

DRUGS (2)
  1. INDERAL [Suspect]
     Indication: HYPERTHYROIDISM
     Dosage: 3 X 1/2 DAILY
     Dates: start: 20050201
  2. INDERAL [Suspect]
     Indication: TREMOR
     Dosage: 3 X 1/2 DAILY
     Dates: start: 20050201

REACTIONS (1)
  - DIPLOPIA [None]
